FAERS Safety Report 13658327 (Version 1)
Quarter: 2017Q2

REPORT INFORMATION
  Report Type: Spontaneous
  Country: CA (occurrence: CA)
  Receive Date: 20170616
  Receipt Date: 20170616
  Transmission Date: 20170830
  Serious: Yes (Other)
  Sender: FDA-Public Use
  Company Number: CA-ASTRAZENECA-2015SE93138

PATIENT
  Age: 70 Year
  Sex: Male

DRUGS (7)
  1. LIPITOR [Concomitant]
     Active Substance: ATORVASTATIN CALCIUM
  2. ESBRIET [Interacting]
     Active Substance: PIRFENIDONE
     Indication: IDIOPATHIC PULMONARY FIBROSIS
     Route: 048
     Dates: start: 20150904
  3. ACETYLSALICYLIC ACID [Concomitant]
     Active Substance: ASPIRIN
  4. EZETROL [Concomitant]
     Active Substance: EZETIMIBE
  5. ESBRIET [Interacting]
     Active Substance: PIRFENIDONE
     Indication: IDIOPATHIC PULMONARY FIBROSIS
     Route: 048
     Dates: start: 20150827
  6. ESBRIET [Interacting]
     Active Substance: PIRFENIDONE
     Indication: IDIOPATHIC PULMONARY FIBROSIS
     Route: 048
     Dates: start: 20150828
  7. LOSEC [Suspect]
     Active Substance: OMEPRAZOLE
     Route: 048

REACTIONS (11)
  - Dyspepsia [Not Recovered/Not Resolved]
  - Red blood cell count increased [Not Recovered/Not Resolved]
  - Fatigue [Not Recovered/Not Resolved]
  - Pulmonary function test decreased [Not Recovered/Not Resolved]
  - Forced vital capacity decreased [Not Recovered/Not Resolved]
  - Drug interaction [Not Recovered/Not Resolved]
  - Cough [Not Recovered/Not Resolved]
  - Decreased appetite [Not Recovered/Not Resolved]
  - Lethargy [Not Recovered/Not Resolved]
  - Thrombosis [Not Recovered/Not Resolved]
  - Drug ineffective [Unknown]
